FAERS Safety Report 4315299-X (Version None)
Quarter: 2004Q1

REPORT INFORMATION
  Report Type: 
  Country: None (occurrence: None)
  Receive Date: 20040309
  Receipt Date: 20040226
  Transmission Date: 20041129
  Serious: Yes (Hospitalization)
  Sender: FDA-Public Use
  Company Number: TR-SHR-03-008406

PATIENT
  Age: 19 Year
  Sex: Female
  Weight: 55 kg

DRUGS (3)
  1. BETAFERON (INTERFERON BETA-1B) INJECTION [Suspect]
     Indication: MULTIPLE SCLEROSIS
     Dosage: EVERY 2D, SUBCUTANEOUS
     Route: 058
  2. PROZAC (FLUOXEYINE HYDROCHLORIDE) [Concomitant]
  3. PREDNISOLONE [Concomitant]

REACTIONS (10)
  - ANOREXIA [None]
  - ANTINUCLEAR ANTIBODY POSITIVE [None]
  - AUTOIMMUNE HEPATITIS [None]
  - CHRONIC HEPATITIS [None]
  - CYTOMEGALOVIRUS ANTIBODY POSITIVE [None]
  - GALLBLADDER DISORDER [None]
  - HEPATIC STEATOSIS [None]
  - HYPOAESTHESIA [None]
  - LOSS OF CONTROL OF LEGS [None]
  - RUBELLA ANTIBODY POSITIVE [None]
